FAERS Safety Report 9128636 (Version 1)
Quarter: 2013Q1

REPORT INFORMATION
  Report Type: Spontaneous
  Country: GB (occurrence: GB)
  Receive Date: 20130228
  Receipt Date: 20130228
  Transmission Date: 20140127
  Serious: Yes (Death, Other)
  Sender: FDA-Public Use
  Company Number: PHHY2013GB019744

PATIENT
  Sex: 0

DRUGS (2)
  1. OMEPRAZOLE [Suspect]
     Route: 064
  2. GAVISCON [Concomitant]
     Route: 064

REACTIONS (1)
  - Stillbirth [Fatal]
